FAERS Safety Report 5235221-1 (Version None)
Quarter: 2007Q1

REPORT INFORMATION
  Report Type: 
  Country: None (occurrence: None)
  Receive Date: 20070208
  Receipt Date: 20070208
  Transmission Date: 20070707
  Serious: Yes (Other)
  Sender: FDA-Public Use
  Company Number: None

PATIENT
  Age: 40 Year
  Sex: Female
  Weight: 56.6996 kg

DRUGS (3)
  1. OXYCONTIN [Suspect]
     Indication: JUVENILE ARTHRITIS
     Dosage: 10 MG 2X A DAY PO
     Route: 048
     Dates: start: 20011119, end: 20070207
  2. OXYCONTIN [Suspect]
     Indication: PAIN
     Dosage: 10 MG 2X A DAY PO
     Route: 048
     Dates: start: 20011119, end: 20070207
  3. OXYCONTIN [Suspect]
     Dosage: 20 MG 2X A DAY PO
     Route: 048
     Dates: start: 20011119, end: 20070207

REACTIONS (6)
  - DENTAL CARIES [None]
  - DRY MOUTH [None]
  - HYPERCHLORHYDRIA [None]
  - PAIN [None]
  - TOOTH DISORDER [None]
  - TOOTH LOSS [None]
